FAERS Safety Report 5217965-0 (Version None)
Quarter: 2007Q1

REPORT INFORMATION
  Report Type: 
  Country: None (occurrence: None)
  Receive Date: 20061130
  Receipt Date: 20060807
  Transmission Date: 20070707
  Serious: Yes (Hospitalization)
  Sender: FDA-Public Use
  Company Number: US200607001054

PATIENT
  Age: 46 Year
  Sex: Female
  Weight: 86.2 kg

DRUGS (1)
  1. OLANZAPINE [Suspect]
     Indication: DRUG USE FOR UNKNOWN INDICATION
     Dosage: 2 UNK, UNKNOWN, UNK
     Dates: start: 20020601

REACTIONS (1)
  - DIABETES MELLITUS [None]
